FAERS Safety Report 10593866 (Version 1)
Quarter: 2014Q4

REPORT INFORMATION
  Report Type: Spontaneous
  Country: DE (occurrence: DE)
  Receive Date: 20141119
  Receipt Date: 20141119
  Transmission Date: 20150529
  Serious: Yes (Congenital Anomaly)
  Sender: FDA-Public Use
  Company Number: DE-TEVA-522732GER

PATIENT
  Age: 0 Year

DRUGS (6)
  1. TRUXAL [Suspect]
     Active Substance: CHLORPROTHIXENE
     Indication: DEPRESSION
     Dosage: 25 MG/D AS NEEDED
     Route: 064
     Dates: start: 20140430, end: 20140609
  2. DOXEPIN [Suspect]
     Active Substance: DOXEPIN
     Indication: DEPRESSION
     Dosage: 75 MILLIGRAM DAILY;
     Route: 064
     Dates: start: 20140430, end: 20140609
  3. CITALOPRAM [Concomitant]
     Active Substance: CITALOPRAM HYDROBROMIDE
     Indication: DEPRESSION
     Route: 064
     Dates: start: 20140709, end: 20140825
  4. ATOSIL [Concomitant]
     Active Substance: PROMETHAZINE HYDROCHLORIDE
     Indication: DEPRESSION
     Dosage: 100 MILLIGRAM DAILY; 25-25-50 MG/D)
     Route: 064
     Dates: start: 20140611, end: 20140825
  5. OMEPRAZOL [Concomitant]
     Active Substance: OMEPRAZOLE
     Indication: GASTRITIS PROPHYLAXIS
     Route: 064
     Dates: start: 20140430, end: 20140825
  6. ERGENYL CHRONO [Suspect]
     Active Substance: VALPROIC ACID
     Indication: BORDERLINE PERSONALITY DISORDER
     Dosage: 1400 MILLIGRAM DAILY; 600 MG - 0 MG - 800 MG / DAY
     Route: 064
     Dates: start: 20140430, end: 20140609

REACTIONS (3)
  - Talipes [Not Recovered/Not Resolved]
  - Spina bifida [Not Recovered/Not Resolved]
  - Foetal exposure during pregnancy [Unknown]
